FAERS Safety Report 16136458 (Version 1)
Quarter: 2019Q1

REPORT INFORMATION
  Report Type: Report from Study
  Country: CA (occurrence: CA)
  Receive Date: 20190329
  Receipt Date: 20190329
  Transmission Date: 20190418
  Serious: Yes (Other)
  Sender: FDA-Public Use
  Company Number: CA-BIOGEN-2019BI00716215

PATIENT
  Age: 59 Year
  Sex: Female

DRUGS (2)
  1. FAMPYRA [Suspect]
     Active Substance: DALFAMPRIDINE
     Indication: GAIT DISTURBANCE
     Route: 048
     Dates: start: 20190321
  2. METFORMIN [Interacting]
     Active Substance: METFORMIN HYDROCHLORIDE
     Indication: DIABETES MELLITUS
     Route: 065

REACTIONS (4)
  - Dizziness [Recovered/Resolved]
  - Diabetes mellitus [Unknown]
  - Prescribed underdose [Not Recovered/Not Resolved]
  - Drug interaction [Unknown]

NARRATIVE: CASE EVENT DATE: 20190321
